FAERS Safety Report 8809379 (Version 1)
Quarter: 2012Q4

REPORT INFORMATION
  Report Type: 
  Country: CA (occurrence: CA)
  Receive Date: 20120926
  Receipt Date: 20120926
  Transmission Date: 20130627
  Serious: Yes (Other)
  Sender: FDA-Public Use
  Company Number: CA-PFIZER INC-2012234846

PATIENT
  Age: 24 Year
  Sex: Female

DRUGS (1)
  1. ALESSE-21 [Suspect]
     Dosage: UNK
     Dates: start: 2007

REACTIONS (5)
  - VIIth nerve paralysis [Recovered/Resolved]
  - Hypoaesthesia [Recovered/Resolved]
  - Sensation of heaviness [Recovered/Resolved]
  - Paraesthesia [Recovered/Resolved]
  - Migraine with aura [Unknown]
